FAERS Safety Report 8758977 (Version 4)
Quarter: 2012Q4

REPORT INFORMATION
  Report Type: Report from Study
  Country: NL (occurrence: NL)
  Receive Date: 20120829
  Receipt Date: 20121024
  Transmission Date: 20130627
  Serious: Yes (Other)
  Sender: FDA-Public Use
  Company Number: NL-009507513-1208NLD010023

PATIENT
  Age: 70 Year
  Sex: Male
  Weight: 94 kg

DRUGS (19)
  1. BLINDED INSULIN [Suspect]
     Indication: TYPE 2 DIABETES MELLITUS
     Dosage: UNK, qd
     Route: 048
     Dates: start: 20120214, end: 20120620
  2. BLINDED METFORMIN [Suspect]
     Indication: TYPE 2 DIABETES MELLITUS
     Dosage: UNK, qd
     Route: 048
     Dates: start: 20120214, end: 20120620
  3. BLINDED PIOGLITAZONE HYDROCHLORIDE [Suspect]
     Indication: TYPE 2 DIABETES MELLITUS
     Dosage: UNK, qd
     Route: 048
     Dates: start: 20120214, end: 20120620
  4. BLINDED PLACEBO [Suspect]
     Indication: TYPE 2 DIABETES MELLITUS
     Dosage: UNK, qd
     Route: 048
     Dates: start: 20120214, end: 20120620
  5. BLINDED POST TRIAL THERAPY [Suspect]
     Indication: TYPE 2 DIABETES MELLITUS
     Dosage: UNK, qd
     Route: 048
     Dates: start: 20120214, end: 20120620
  6. BLINDED PRE TRIAL THERAPY [Suspect]
     Indication: TYPE 2 DIABETES MELLITUS
     Dosage: UNK, qd
     Route: 048
     Dates: start: 20120214, end: 20120620
  7. BLINDED SITAGLIPTIN PHOSPHATE [Suspect]
     Indication: TYPE 2 DIABETES MELLITUS
     Dosage: UNK, qd
     Route: 048
     Dates: start: 20120214, end: 20120620
  8. JANUVIA [Concomitant]
     Indication: TYPE 2 DIABETES MELLITUS
     Dosage: 100 mg, qd
     Route: 048
     Dates: start: 20120601
  9. QUINAPRIL HYDROCHLORIDE [Concomitant]
     Indication: CARDIAC FAILURE CONGESTIVE
     Dosage: 10 mg, qd
     Dates: start: 20120702
  10. EPLERENONE [Concomitant]
     Indication: CARDIAC FAILURE CONGESTIVE
     Dosage: 25 mg, qd
     Dates: start: 20120423
  11. AMLODIPINE [Concomitant]
     Indication: HYPERTENSION
     Dosage: 5 mg, qd
     Dates: start: 20120423
  12. BUMETANIDE [Concomitant]
     Indication: CARDIAC FAILURE CONGESTIVE
     Dosage: 1 mg, qd
     Dates: start: 20120423
  13. METOPROLOL SUCCINATE [Concomitant]
     Indication: ANGINA PECTORIS
     Dosage: 100 mg, qd
     Dates: start: 20120123
  14. PRAVASTATIN SODIUM [Concomitant]
     Indication: HYPERCHOLESTEROLAEMIA
     Dosage: 40 mg, qd
     Dates: start: 20120123
  15. HYDROCHLOROTHIAZIDE [Concomitant]
     Indication: CARDIAC FAILURE CONGESTIVE
     Dosage: 12.5 mg, qd
     Dates: start: 20120123
  16. METFORMIN [Concomitant]
     Indication: TYPE 2 DIABETES MELLITUS
     Dosage: 1000 mg, qd
     Dates: start: 20101125
  17. AMIODARONE [Concomitant]
     Indication: PROPHYLAXIS
     Dosage: 200 mg, qd
     Dates: start: 20120126
  18. MINITRAN (NITROGLYCERIN) [Concomitant]
     Indication: ANGINA PECTORIS
     Dosage: 36 mg, qd
     Dates: start: 20110131
  19. ASCAL CARDIO [Concomitant]
     Indication: CORONARY ARTERY INSUFFICIENCY
     Dosage: 80 mg, qd

REACTIONS (1)
  - Accidental overdose [Recovered/Resolved]
